FAERS Safety Report 17704721 (Version 6)
Quarter: 2022Q4

REPORT INFORMATION
  Report Type: Spontaneous
  Country: US (occurrence: US)
  Receive Date: 20200424
  Receipt Date: 20221121
  Transmission Date: 20230113
  Serious: No
  Sender: FDA-Public Use
  Company Number: US-SA-2020SA103218

PATIENT
  Age: 55 Year
  Sex: Male

DRUGS (1)
  1. CAPRELSA [Suspect]
     Active Substance: VANDETANIB
     Indication: Thyroid cancer
     Dosage: 300 MG, QD
     Route: 048
     Dates: start: 20200224

REACTIONS (8)
  - Rhinorrhoea [Unknown]
  - Arthralgia [Unknown]
  - Infection [Unknown]
  - Memory impairment [Unknown]
  - Rash [Unknown]
  - Blood pressure increased [Unknown]
  - Acne [Unknown]
  - Product dose omission in error [Unknown]
